FAERS Safety Report 8765829 (Version 3)
Quarter: 2012Q4

REPORT INFORMATION
  Report Type: Report from Study
  Country: US (occurrence: US)
  Receive Date: 20120904
  Receipt Date: 20121221
  Transmission Date: 20130627
  Serious: Yes (Hospitalization)
  Sender: FDA-Public Use
  Company Number: US-BRISTOL-MYERS SQUIBB COMPANY-16910143

PATIENT
  Age: 70 Year
  Sex: Male
  Weight: 67.12 kg

DRUGS (12)
  1. CETUXIMAB [Suspect]
     Indication: HEAD AND NECK CANCER
     Dosage: Last dose: 15Aug-2012, 250mg/m2/wk 1in 21d
     Route: 042
     Dates: start: 20120418
  2. CARBOPLATIN [Suspect]
     Indication: HEAD AND NECK CANCER
     Dosage: 1DF: 5AUC, Last dose: 08Aug-2012
     Route: 042
     Dates: start: 20120418
  3. PEMETREXED DISODIUM [Suspect]
     Indication: HEAD AND NECK CANCER
     Dosage: Last dose: 08Aug-2012
     Route: 042
     Dates: start: 20120418
  4. VITAMIN B12 [Concomitant]
     Dates: start: 20120412
  5. FOLIC ACID [Concomitant]
     Dates: start: 20120412
  6. FAMOTIDINE [Concomitant]
     Dates: start: 201112
  7. OMEPRAZOLE [Concomitant]
     Dates: start: 201112
  8. BACTRIM [Concomitant]
  9. PROMETHAZINE [Concomitant]
  10. MAGNESIUM [Concomitant]
     Dates: start: 20120523
  11. PROCRIT [Concomitant]
     Dates: start: 2012
  12. LORTAB [Concomitant]
     Dates: start: 20120409

REACTIONS (3)
  - Dehydration [Recovered/Resolved]
  - Urinary tract infection [Recovered/Resolved]
  - Thrombocytopenia [Recovered/Resolved]
